FAERS Safety Report 8285456-9 (Version None)
Quarter: 2012Q2

REPORT INFORMATION
  Report Type: 
  Country: None (occurrence: None)
  Receive Date: 20120413
  Receipt Date: 20120216
  Transmission Date: 20120825
  Serious: No
  Sender: FDA-Public Use
  Company Number: US-ASTRAZENECA-2011SE53935

PATIENT
  Age: 61 Year
  Sex: Female

DRUGS (2)
  1. VIMOVO [Suspect]
     Route: 048
  2. NEXIUM [Suspect]
     Route: 048

REACTIONS (6)
  - SPONDYLITIS [None]
  - MALAISE [None]
  - EYE SWELLING [None]
  - SPEECH DISORDER [None]
  - DYSPHONIA [None]
  - LIP SWELLING [None]
